FAERS Safety Report 12606714 (Version 2)
Quarter: 2016Q4

REPORT INFORMATION
  Report Type: Spontaneous
  Country: US (occurrence: US)
  Receive Date: 20160729
  Receipt Date: 20161219
  Transmission Date: 20170207
  Serious: No
  Sender: FDA-Public Use
  Company Number: US-APOTEX-2016AP007613

PATIENT
  Age: 67 Year
  Sex: Female

DRUGS (4)
  1. CALCITONIN SALMON. [Suspect]
     Active Substance: CALCITONIN SALMON
     Indication: PRODUCT USED FOR UNKNOWN INDICATION
     Dosage: 1 SPRAY DAILY
     Route: 045
  2. LEVOTHYROXINE. [Concomitant]
     Active Substance: LEVOTHYROXINE
     Indication: HYPOTHYROIDISM
     Dosage: UNK
     Route: 065
  3. LATANOPROST. [Concomitant]
     Active Substance: LATANOPROST
     Indication: GLAUCOMA
     Dosage: UNK
     Route: 065
  4. CALCITONIN SALMON. [Suspect]
     Active Substance: CALCITONIN SALMON
     Dosage: 1 SPRAY DAILY
     Route: 045

REACTIONS (2)
  - Product label issue [Unknown]
  - Arthralgia [Not Recovered/Not Resolved]
